FAERS Safety Report 18380240 (Version 1)
Quarter: 2020Q4

REPORT INFORMATION
  Report Type: Report from Study
  Country: US (occurrence: US)
  Receive Date: 20201014
  Receipt Date: 20201014
  Transmission Date: 20210114
  Serious: Yes (Other)
  Sender: FDA-Public Use
  Company Number: US-PBT-000094

PATIENT
  Age: 44 Year

DRUGS (4)
  1. MESNA. [Concomitant]
     Active Substance: MESNA
     Indication: SUPPORTIVE CARE
     Route: 065
  2. MYCOPHENOLATE MOFETIL. [Suspect]
     Active Substance: MYCOPHENOLATE MOFETIL
     Indication: PROPHYLAXIS AGAINST GRAFT VERSUS HOST DISEASE
     Dosage: MAXIMUM DAILY DOSE 3000 MG
     Route: 065
  3. CYCLOPHOSPHAMIDE. [Suspect]
     Active Substance: CYCLOPHOSPHAMIDE
     Indication: PROPHYLAXIS AGAINST GRAFT VERSUS HOST DISEASE
     Route: 042
  4. TACROLIMUS. [Suspect]
     Active Substance: TACROLIMUS
     Indication: PROPHYLAXIS AGAINST GRAFT VERSUS HOST DISEASE
     Dosage: ON DAY +5 WITH A TARGET TROUGH OF 5-10 NG/ML WITH TAPERING BEGINNING AT DAY +180
     Route: 065

REACTIONS (4)
  - Product use in unapproved indication [Unknown]
  - Cystitis viral [Unknown]
  - Graft versus host disease in eye [Unknown]
  - Drug ineffective [Unknown]
